FAERS Safety Report 4446126-8 (Version None)
Quarter: 2004Q3

REPORT INFORMATION
  Report Type: 
  Country: None (occurrence: None)
  Receive Date: 20040907
  Receipt Date: 20040826
  Transmission Date: 20050211
  Serious: Yes (Hospitalization, Other)
  Sender: FDA-Public Use
  Company Number: GB-BRISTOL-MYERS SQUIBB COMPANY-12684767

PATIENT
  Age: 76 Year
  Sex: Male
  Weight: 91 kg

DRUGS (10)
  1. BLINDED: IRBESARTAN [Suspect]
     Indication: HYPERTENSION
     Dates: start: 20040401, end: 20040101
  2. BLINDED: PLACEBO [Suspect]
     Indication: HYPERTENSION
     Dates: start: 20040401, end: 20040101
  3. BLINDED: CLOPIDOGREL BISULFATE [Suspect]
     Indication: PROPHYLAXIS
     Dates: start: 20040401
  4. ASPIRIN [Suspect]
     Indication: PROPHYLAXIS
     Dates: start: 20040401
  5. CAPTOPRIL [Suspect]
     Dates: end: 20040101
  6. DIGOXIN [Suspect]
     Dosage: STARTED PRIOR TO 1995, DOSE REDUCED TO 125 MG.
  7. FRUSEMIDE [Suspect]
     Dosage: DOSE REDUCED TO 40 MG
  8. GLICLAZIDE [Concomitant]
  9. ISOSORBIDE MONONITRATE [Concomitant]
  10. LACTULOSE [Concomitant]

REACTIONS (2)
  - RENAL IMPAIRMENT [None]
  - THERAPEUTIC AGENT TOXICITY [None]
